FAERS Safety Report 19031058 (Version 2)
Quarter: 2021Q1

REPORT INFORMATION
  Report Type: Spontaneous
  Country: US (occurrence: US)
  Receive Date: 20210319
  Receipt Date: 20210322
  Transmission Date: 20210420
  Serious: Yes (Other)
  Sender: FDA-Public Use
  Company Number: US-009507513-2103USA003384

PATIENT

DRUGS (1)
  1. INTRON A [Suspect]
     Active Substance: INTERFERON ALFA-2B
     Indication: OCULAR SURFACE SQUAMOUS NEOPLASIA
     Dosage: 1 MILLION INTERNATIONAL UNITS (IU)/ML APPLIED 4 TIMES DAILY; TOPICAL EYE DROPS
     Route: 047

REACTIONS (6)
  - Eye irritation [Unknown]
  - Off label use [Unknown]
  - Conjunctival follicles [Unknown]
  - Product preparation issue [Unknown]
  - Incorrect route of product administration [Unknown]
  - Corneal epithelium defect [Unknown]
